FAERS Safety Report 16288206 (Version 1)
Quarter: 2019Q2

REPORT INFORMATION
  Report Type: Spontaneous
  Country: US (occurrence: US)
  Receive Date: 20190508
  Receipt Date: 20190508
  Transmission Date: 20190711
  Serious: Yes (Other)
  Sender: FDA-Public Use
  Company Number: US-ALLERGAN-1907440US

PATIENT
  Sex: Female

DRUGS (4)
  1. BOTOX [Suspect]
     Active Substance: ONABOTULINUMTOXINA
     Indication: MIGRAINE
     Dosage: UNK, SINGLE (EVERY 8 WEEKS)
     Route: 030
  2. HYPNOTICS AND SEDATIVES [Concomitant]
     Active Substance: UNSPECIFIED INGREDIENT
     Indication: SLEEP DISORDER
     Dosage: UNK
  3. VYVANSE [Concomitant]
     Active Substance: LISDEXAMFETAMINE DIMESYLATE
     Indication: ATTENTION DEFICIT/HYPERACTIVITY DISORDER
     Dosage: UNK
  4. MUSCLE RELAXANTS [Concomitant]
     Active Substance: UNSPECIFIED INGREDIENT
     Indication: MIGRAINE
     Dosage: UNK

REACTIONS (2)
  - Thyroid cancer [Recovered/Resolved]
  - Diffuse alopecia [Not Recovered/Not Resolved]

NARRATIVE: CASE EVENT DATE: 201604
